FAERS Safety Report 15888329 (Version 1)
Quarter: 2019Q1

REPORT INFORMATION
  Report Type: Spontaneous
  Country: US (occurrence: US)
  Receive Date: 20190108
  Receipt Date: 20190108
  Transmission Date: 20190417
  Serious: Yes (Hospitalization)
  Sender: FDA-Public Use
  Company Number: None

PATIENT
  Age: 64 Year
  Sex: Female
  Weight: 112 kg

DRUGS (4)
  1. ONCASPAR [Suspect]
     Active Substance: PEGASPARGASE
     Dates: end: 20181109
  2. CYTARABINE. [Suspect]
     Active Substance: CYTARABINE
     Dates: end: 20181221
  3. ETOPOSIDE (VP -16) [Suspect]
     Active Substance: ETOPOSIDE
     Dates: end: 20181221
  4. METHOTREXATE. [Suspect]
     Active Substance: METHOTREXATE
     Dates: end: 20181220

REACTIONS (11)
  - Thrombocytopenia [None]
  - Haemorrhage [None]
  - Meningitis [None]
  - Head injury [None]
  - Fall [None]
  - Septic shock [None]
  - Lung consolidation [None]
  - Dizziness [None]
  - Skin abrasion [None]
  - Blood pressure decreased [None]
  - Neutropenia [None]

NARRATIVE: CASE EVENT DATE: 20190102
